FAERS Safety Report 17576231 (Version 1)
Quarter: 2020Q1

REPORT INFORMATION
  Report Type: Spontaneous
  Country: NL (occurrence: NL)
  Receive Date: 20200324
  Receipt Date: 20200324
  Transmission Date: 20200409
  Serious: Yes (Death, Hospitalization, Other)
  Sender: FDA-Public Use
  Company Number: NL-PERRIGO-20NL004135

PATIENT
  Age: 44 Year
  Sex: Female

DRUGS (1)
  1. PARACETAMOL [Suspect]
     Active Substance: ACETAMINOPHEN
     Indication: PRODUCT USED FOR UNKNOWN INDICATION
     Dosage: 50 G (ACUE INTAKE)
     Route: 048

REACTIONS (18)
  - Toxicity to various agents [Fatal]
  - Hepatobiliary disease [Fatal]
  - Acute hepatic failure [Fatal]
  - Overdose [Fatal]
  - Blood lactic acid increased [Fatal]
  - Metabolic acidosis [Fatal]
  - Coagulopathy [Fatal]
  - Alanine aminotransferase increased [Fatal]
  - Drug-induced liver injury [Fatal]
  - Respiratory alkalosis [Fatal]
  - Aspartate aminotransferase increased [Fatal]
  - Prothrombin time prolonged [Fatal]
  - Gamma-glutamyltransferase increased [Fatal]
  - Glutamate dehydrogenase increased [Fatal]
  - International normalised ratio increased [Fatal]
  - Blood alkaline phosphatase increased [Fatal]
  - Blood bilirubin increased [Fatal]
  - Blood creatine phosphokinase increased [Fatal]
